FAERS Safety Report 7746150-3 (Version None)
Quarter: 2011Q3

REPORT INFORMATION
  Report Type: 
  Country: None (occurrence: None)
  Receive Date: 20110913
  Receipt Date: 20110908
  Transmission Date: 20111222
  Serious: Yes (Death, Other)
  Sender: FDA-Public Use
  Company Number: JP-SANOFI-AVENTIS-2010SA056661

PATIENT
  Age: 70 Year
  Sex: Male
  Weight: 56 kg

DRUGS (10)
  1. TAXOTERE [Suspect]
     Indication: PROSTATE CANCER
     Route: 041
     Dates: start: 20090623, end: 20090623
  2. GRAN [Suspect]
     Route: 058
     Dates: start: 20091204, end: 20091207
  3. DECADRON [Concomitant]
     Indication: PROSTATE CANCER
     Route: 048
     Dates: start: 20091006, end: 20091207
  4. GRANISETRON [Concomitant]
     Indication: PROPHYLAXIS
     Route: 041
     Dates: start: 20090623, end: 20091127
  5. DEXAMETHASONE [Concomitant]
     Indication: PROPHYLAXIS
     Route: 041
     Dates: start: 20090623, end: 20091127
  6. LANSOPRAZOLE [Concomitant]
     Indication: PROPHYLAXIS
     Route: 048
     Dates: start: 20080401, end: 20091207
  7. TAXOTERE [Suspect]
     Route: 041
     Dates: start: 20091127, end: 20091127
  8. GRAN [Suspect]
     Indication: PROPHYLAXIS
     Route: 058
     Dates: start: 20090915
  9. URSO 250 [Concomitant]
     Indication: PROPHYLAXIS
     Route: 048
     Dates: start: 20080902, end: 20091207
  10. TAXOTERE [Suspect]
     Route: 041
     Dates: start: 20090908, end: 20090908

REACTIONS (4)
  - WHITE BLOOD CELL COUNT DECREASED [None]
  - BONE MARROW FAILURE [None]
  - PYREXIA [None]
  - INTERSTITIAL LUNG DISEASE [None]
